FAERS Safety Report 22147883 (Version 1)
Quarter: 2023Q1

REPORT INFORMATION
  Report Type: Spontaneous
  Country: US (occurrence: None)
  Receive Date: 20230328
  Receipt Date: 20230328
  Transmission Date: 20230418
  Serious: Yes (Hospitalization)
  Sender: FDA-Public Use
  Company Number: None

PATIENT
  Age: 77 Year
  Sex: Male
  Weight: 88.0 kg

DRUGS (33)
  1. CAPECITABINE [Suspect]
     Active Substance: CAPECITABINE
     Indication: Rectal cancer
     Dosage: 1500MG  TWICE A DAY ORAL
     Route: 048
  2. ACETYL L-CAMITINE [Concomitant]
  3. VITAMINS [Concomitant]
     Active Substance: VITAMINS
  4. AST EXCELLACOR ENZYMES [Concomitant]
  5. BARLEY [Concomitant]
     Active Substance: BARLEY
  6. CANNABIDIOL\HERBALS [Concomitant]
     Active Substance: CANNABIDIOL\HERBALS
  7. COPPER CAPS [Concomitant]
  8. VITAMIN C-ROSE HIPS [Concomitant]
  9. DMD B COMPLEX LIQUID [Concomitant]
  10. ECHINACEA [Concomitant]
     Active Substance: ECHINACEA, UNSPECIFIED
  11. EYLEA [Concomitant]
     Active Substance: AFLIBERCEPT
  12. FLEX OMEGA [Concomitant]
  13. HOMEOPATHIC CELL IODINE [Concomitant]
  14. IRON [Concomitant]
     Active Substance: IRON
  15. LOMOTIL [Concomitant]
     Active Substance: ATROPINE SULFATE\DIPHENOXYLATE HYDROCHLORIDE
  16. VITAMINS [Concomitant]
     Active Substance: VITAMINS
  17. MAGNESIUM GLYCINATE [Concomitant]
     Active Substance: MAGNESIUM GLYCINATE
  18. METOPROLOL TARTRATE [Concomitant]
     Active Substance: METOPROLOL TARTRATE
  19. NEOMYCIN-POLYMYIXIN-DEXAMETH [Concomitant]
  20. OMEGA 3 +D [Concomitant]
  21. ONDANSETRON [Concomitant]
     Active Substance: ONDANSETRON
  22. ACETAMINOPHEN\OXYCODONE HYDROCHLORIDE [Concomitant]
     Active Substance: ACETAMINOPHEN\OXYCODONE HYDROCHLORIDE
  23. PEPTO-BISMOL [Concomitant]
     Active Substance: BISMUTH SUBSALICYLATE
  24. PYRROLOQUINOLINE QUINONE [Concomitant]
  25. SELENIUM [Concomitant]
     Active Substance: SELENIUM
  26. TIMOLOL MALEATE [Concomitant]
     Active Substance: TIMOLOL MALEATE
  27. TRAVOPROST [Concomitant]
     Active Substance: TRAVOPROST
  28. HERBALS\TURMERIC [Concomitant]
     Active Substance: HERBALS\TURMERIC
  29. UBIQUINOL [Concomitant]
     Active Substance: UBIQUINOL
  30. WHOLE FOOD VITAMIN C [Concomitant]
  31. WHOLE FOOD VITAMIN E [Concomitant]
  32. VITAMINA [Concomitant]
  33. VITAMIN D3 [Concomitant]
     Active Substance: CHOLECALCIFEROL

REACTIONS (1)
  - Therapy interrupted [None]
